FAERS Safety Report 12976757 (Version 1)
Quarter: 2016Q4

REPORT INFORMATION
  Report Type: Spontaneous
  Country: BR (occurrence: BR)
  Receive Date: 20161128
  Receipt Date: 20161128
  Transmission Date: 20170207
  Serious: Yes (Hospitalization, Other)
  Sender: FDA-Public Use
  Company Number: PHHY2016BR160535

PATIENT
  Sex: Female

DRUGS (1)
  1. TRILEPTAL [Suspect]
     Active Substance: OXCARBAZEPINE
     Indication: SEIZURE
     Dosage: UNK UNK, TID (1 TABLET AND A HALF 3 TIMES A DAY)
     Route: 048

REACTIONS (9)
  - Metastases to lung [Unknown]
  - Seizure [Unknown]
  - Neoplasm recurrence [Unknown]
  - Metastases to central nervous system [Unknown]
  - Metastases to spine [Unknown]
  - Urinary tract infection [Unknown]
  - Communication disorder [Unknown]
  - Aspiration bronchial [Not Recovered/Not Resolved]
  - Movement disorder [Unknown]

NARRATIVE: CASE EVENT DATE: 2012
